FAERS Safety Report 8357613-4 (Version None)
Quarter: 2012Q2

REPORT INFORMATION
  Report Type: 
  Country: None (occurrence: None)
  Receive Date: 20120510
  Receipt Date: 20120510
  Transmission Date: 20120825
  Serious: Yes (Hospitalization, Other)
  Sender: FDA-Public Use
  Company Number: 2011SP053216

PATIENT
  Age: 71 Year
  Sex: Female

DRUGS (6)
  1. RIBAVIRIN [Suspect]
     Indication: HEPATITIS C
     Dosage: 1000 MG;QD;PO, 800 MG;QD;PO
     Route: 048
     Dates: start: 20111031, end: 20111123
  2. RIBAVIRIN [Suspect]
     Indication: HEPATITIS C
     Dosage: 1000 MG;QD;PO, 800 MG;QD;PO
     Route: 048
     Dates: start: 20111003, end: 20111030
  3. NEORECORMON [Concomitant]
  4. PEG-INTRON [Suspect]
     Indication: HEPATITIS C
     Dosage: 100 MCG;QW;SC
     Route: 058
     Dates: start: 20111003, end: 20111123
  5. TACHIDOL [Concomitant]
  6. BOCEPREVIR (SCH-503034) [Suspect]
     Indication: HEPATITIS C
     Dosage: 2400 MG;QD;PO
     Route: 048
     Dates: start: 20111031, end: 20111123

REACTIONS (2)
  - SYNCOPE [None]
  - ANAEMIA [None]
